FAERS Safety Report 5061274-X (Version None)
Quarter: 2006Q3

REPORT INFORMATION
  Report Type: 
  Country: None (occurrence: None)
  Receive Date: 20060720
  Receipt Date: 20060707
  Transmission Date: 20061208
  Serious: Yes (Hospitalization)
  Sender: FDA-Public Use
  Company Number: 2006070309

PATIENT
  Age: 31 Year
  Sex: Female
  Weight: 70 kg

DRUGS (3)
  1. CELEBREX [Suspect]
  2. DICLOFENAC SODIUM [Concomitant]
  3. BUSCOPAN   (HYOSCINE HYDROCHLORIDE) [Concomitant]

REACTIONS (1)
  - PANCREATITIS ACUTE [None]
